FAERS Safety Report 11433506 (Version 2)
Quarter: 2016Q1

REPORT INFORMATION
  Report Type: Report from Study
  Country: CA (occurrence: CA)
  Receive Date: 20150831
  Receipt Date: 20160222
  Transmission Date: 20160525
  Serious: Yes (Hospitalization, Other)
  Sender: FDA-Public Use
  Company Number: CA-ROCHE-ITM201402IM005023

PATIENT
  Age: 48 Year
  Sex: Male

DRUGS (10)
  1. ESBRIET [Suspect]
     Active Substance: PIRFENIDONE
     Indication: IDIOPATHIC PULMONARY FIBROSIS
     Route: 048
     Dates: start: 20140120
  2. METFORMIN [Concomitant]
     Active Substance: METFORMIN HYDROCHLORIDE
     Route: 065
  3. ROSUVASTATIN [Concomitant]
     Active Substance: ROSUVASTATIN
     Route: 065
  4. ESBRIET [Suspect]
     Active Substance: PIRFENIDONE
     Route: 048
     Dates: start: 20140206
  5. APO-HYDRO [Concomitant]
     Active Substance: HYDROCHLOROTHIAZIDE
     Route: 065
  6. TECTA [Concomitant]
     Active Substance: PANTOPRAZOLE MAGNESIUM
     Route: 065
  7. LISINOPRIL. [Concomitant]
     Active Substance: LISINOPRIL
     Route: 065
  8. ZOPLICONE [Concomitant]
     Active Substance: ZOPICLONE
     Route: 065
  9. ESBRIET [Suspect]
     Active Substance: PIRFENIDONE
     Route: 048
  10. VENLAFAXINE [Concomitant]
     Active Substance: VENLAFAXINE HYDROCHLORIDE
     Route: 065

REACTIONS (12)
  - Idiopathic pulmonary fibrosis [Not Recovered/Not Resolved]
  - Sputum discoloured [Not Recovered/Not Resolved]
  - Fatigue [Unknown]
  - Carbon monoxide diffusing capacity decreased [Unknown]
  - Post procedural infection [Not Recovered/Not Resolved]
  - Back pain [Unknown]
  - Pneumonia [Recovered/Resolved]
  - Cough [Not Recovered/Not Resolved]
  - Dyspepsia [Unknown]
  - Total lung capacity decreased [Unknown]
  - Blood glucose increased [Not Recovered/Not Resolved]
  - Circumcision [Not Recovered/Not Resolved]

NARRATIVE: CASE EVENT DATE: 20140127
